FAERS Safety Report 7786263-3 (Version None)
Quarter: 2011Q3

REPORT INFORMATION
  Report Type: 
  Country: None (occurrence: None)
  Receive Date: 20110929
  Receipt Date: 20110922
  Transmission Date: 20111222
  Serious: Yes (Hospitalization)
  Sender: FDA-Public Use
  Company Number: FR-UCBSA-038319

PATIENT
  Sex: Female

DRUGS (10)
  1. SYMBICORT [Concomitant]
     Dosage: DAILY DOSE: 2 PUFFS
  2. CACIT VITAMINE D3 [Concomitant]
     Dosage: DAILY DOSE: 1 TABLET
  3. ZOLPIDEM [Concomitant]
     Dosage: DAILY DOSE: 1 TABLET
  4. STABLON [Concomitant]
     Dosage: 3 TABLETS A DAY
     Route: 048
  5. KEPPRA [Suspect]
     Indication: EPILEPSY
     Route: 048
     Dates: start: 20110605, end: 20110721
  6. LEVOTHYROXINE SODIUM [Concomitant]
     Indication: HYPOTHYROIDISM
     Dosage: DAILY DOSE: 25 MCG
  7. OXAZEPAM [Concomitant]
     Dosage: DAILY DOSE: 3 TABLETS; FORM STRENGTH: 10 MG
  8. IRBESARTAN [Concomitant]
     Dosage: DAILY DOSE: 150 MG
  9. ASPEGIC 325 [Concomitant]
     Dosage: DAILY DOSE: 150 MG
  10. ESCITALOPRAM OXALATE [Concomitant]
     Dosage: DAILY DOSE: 1 TABLET
     Dates: end: 20110720

REACTIONS (5)
  - CONSTIPATION [None]
  - TREMOR [None]
  - SUICIDAL IDEATION [None]
  - SUICIDE ATTEMPT [None]
  - CARDIAC MURMUR [None]
